FAERS Safety Report 6040318-2 (Version None)
Quarter: 2009Q1

REPORT INFORMATION
  Report Type: 
  Country: None (occurrence: None)
  Receive Date: 20090116
  Receipt Date: 20080213
  Transmission Date: 20090719
  Serious: No
  Sender: FDA-Public Use
  Company Number: US-BRISTOL-MYERS SQUIBB COMPANY-14075097

PATIENT
  Age: 17 Year
  Sex: Female
  Weight: 72 kg

DRUGS (4)
  1. ABILIFY [Suspect]
     Indication: OBSESSIVE-COMPULSIVE DISORDER
     Dosage: INITIAL DOSE WAS 1 MILLIGRAM AND WAS INCREMENTALLY INCREASED TO 3 MG ,FINALLY TERMINATED
     Route: 048
     Dates: start: 20070801
  2. LEXAPRO [Concomitant]
     Dates: start: 20070701, end: 20070901
  3. EFFEXOR [Concomitant]
  4. PROZAC [Concomitant]

REACTIONS (4)
  - ANXIETY [None]
  - EATING DISORDER [None]
  - FOOD CRAVING [None]
  - WEIGHT INCREASED [None]
